FAERS Safety Report 24761353 (Version 1)
Quarter: 2024Q4

REPORT INFORMATION
  Report Type: Spontaneous
  Country: ES (occurrence: ES)
  Receive Date: 20241220
  Receipt Date: 20241220
  Transmission Date: 20250114
  Serious: Yes (Death, Other)
  Sender: BRACCO
  Company Number: ES-BRACCO-2024ES02193

PATIENT
  Age: 73 Year
  Sex: Female

DRUGS (3)
  1. PROHANCE [Suspect]
     Active Substance: GADOTERIDOL
     Indication: Magnetic resonance imaging
     Dosage: 20 ML, SINGLE
     Route: 042
     Dates: start: 20240411, end: 20240411
  2. ASPIRIN [Concomitant]
     Active Substance: ASPIRIN
     Indication: Product used for unknown indication
     Dosage: 20 ML, QD, 1 TABLET
  3. ATORVASTATIN [Concomitant]
     Active Substance: ATORVASTATIN
     Indication: Product used for unknown indication
     Dosage: 40 MG, QD AT NIGHT

REACTIONS (7)
  - Anaphylactic shock [Fatal]
  - Hypersensitivity [Fatal]
  - Dyskinesia [Fatal]
  - Seizure [Fatal]
  - Aphasia [Fatal]
  - Asthenia [Fatal]
  - Cardiac arrest [Fatal]

NARRATIVE: CASE EVENT DATE: 20240411
